FAERS Safety Report 4559062-3 (Version None)
Quarter: 2005Q1

REPORT INFORMATION
  Report Type: 
  Country: None (occurrence: None)
  Receive Date: 20050124
  Receipt Date: 20041228
  Transmission Date: 20050727
  Serious: Yes (Other)
  Sender: FDA-Public Use
  Company Number: 200510105JP

PATIENT
  Sex: Male

DRUGS (1)
  1. TAXOTERE [Suspect]
     Indication: NASAL SINUS CANCER
     Route: 041

REACTIONS (2)
  - GASTROINTESTINAL HAEMORRHAGE [None]
  - MASS [None]
